FAERS Safety Report 17802825 (Version 1)
Quarter: 2020Q2

REPORT INFORMATION
  Report Type: Spontaneous
  Country: US (occurrence: US)
  Receive Date: 20200519
  Receipt Date: 20200519
  Transmission Date: 20200714
  Serious: Yes (Death)
  Sender: FDA-Public Use
  Company Number: None

PATIENT
  Age: 62 Year
  Sex: Male

DRUGS (2)
  1. ZIAGEN [Suspect]
     Active Substance: ABACAVIR SULFATE
     Indication: HIV INFECTION
     Dosage: ?          OTHER FREQUENCY:TK 2 TS PO ONCE D;?
     Route: 048
     Dates: start: 20190411
  2. PREZCOBIX [Suspect]
     Active Substance: COBICISTAT\DARUNAVIR ETHANOLATE
     Indication: HIV INFECTION
     Dosage: ?          OTHER FREQUENCY:TK 1 T PO D;?
     Route: 048
     Dates: start: 20190220

REACTIONS (1)
  - Death [None]
